FAERS Safety Report 18975294 (Version 2)
Quarter: 2021Q2

REPORT INFORMATION
  Report Type: Spontaneous
  Country: PE (occurrence: PE)
  Receive Date: 20210305
  Receipt Date: 20210524
  Transmission Date: 20210717
  Serious: Yes (Death, Other)
  Sender: FDA-Public Use
  Company Number: PE-TEIKOKU PHARMA USA-TPU2021-00364

PATIENT
  Age: 74 Year
  Sex: Male

DRUGS (3)
  1. VERSATIS [Suspect]
     Active Substance: LIDOCAINE
     Indication: PAIN
  2. VERSATIS [Suspect]
     Active Substance: LIDOCAINE
     Indication: BACK PAIN
     Route: 061
  3. PAXELIS [Suspect]
     Active Substance: TAPENTADOL HYDROCHLORIDE
     Indication: BACK PAIN
     Route: 065

REACTIONS (3)
  - Death [Fatal]
  - Somnolence [Unknown]
  - Altered state of consciousness [Unknown]
